FAERS Safety Report 7447248-X (Version None)
Quarter: 2011Q2

REPORT INFORMATION
  Report Type: 
  Country: None (occurrence: None)
  Receive Date: 20110429
  Receipt Date: 20110103
  Transmission Date: 20111010
  Serious: No
  Sender: FDA-Public Use
  Company Number: US-ASTRAZENECA-2011SE00261

PATIENT
  Age: 63 Year
  Sex: Female
  Weight: 88.5 kg

DRUGS (2)
  1. NEXIUM [Suspect]
     Indication: DYSPEPSIA
     Route: 048
     Dates: start: 20101224
  2. THYROID MEDICATION [Concomitant]

REACTIONS (3)
  - FAECES HARD [None]
  - CONSTIPATION [None]
  - ABDOMINAL DISCOMFORT [None]
